FAERS Safety Report 7775863-2 (Version None)
Quarter: 2011Q3

REPORT INFORMATION
  Report Type: 
  Country: None (occurrence: None)
  Receive Date: 20110923
  Receipt Date: 20110908
  Transmission Date: 20111222
  Serious: Yes (Death, Hospitalization)
  Sender: FDA-Public Use
  Company Number: GB-WATSON-2011-15210

PATIENT
  Age: 20 Year
  Sex: Male

DRUGS (7)
  1. PARACETAMOL (UNKNOWN) [Suspect]
     Indication: SUICIDE ATTEMPT
  2. AMOXICILLIN [Suspect]
     Indication: SUICIDE ATTEMPT
     Dosage: UNK
  3. TRICYCLIC ANTIDEPRESSANTS [Suspect]
     Indication: SUICIDE ATTEMPT
     Dosage: UNK
  4. ERYTHROMYCIN [Suspect]
     Indication: SUICIDE ATTEMPT
     Dosage: UNK
  5. LOPERAMIDE HCL [Suspect]
     Indication: SUICIDE ATTEMPT
     Dosage: UNK
  6. ACETAMINOPHEN [Suspect]
     Indication: SUICIDE ATTEMPT
  7. FERROUS SULFATE TAB [Suspect]
     Indication: SUICIDE ATTEMPT
     Dosage: UNK
     Route: 048

REACTIONS (5)
  - DRUG INTERACTION [None]
  - INTRACRANIAL PRESSURE INCREASED [None]
  - LIVER INJURY [None]
  - OVERDOSE [None]
  - SEPSIS [None]
